FAERS Safety Report 6169606-6 (Version None)
Quarter: 2009Q2

REPORT INFORMATION
  Report Type: 
  Country: None (occurrence: None)
  Receive Date: 20090428
  Receipt Date: 20090309
  Transmission Date: 20091009
  Serious: No
  Sender: FDA-Public Use
  Company Number: US-BAYER-200911868NA

PATIENT
  Age: 46 Year
  Sex: Female
  Weight: 61 kg

DRUGS (1)
  1. MIRENA [Suspect]
     Indication: CONTRACEPTION
     Dosage: CONTINUOUS
     Route: 015
     Dates: start: 20080612, end: 20080825

REACTIONS (7)
  - FATIGUE [None]
  - FORMICATION [None]
  - INSOMNIA [None]
  - NIGHT SWEATS [None]
  - PALPITATIONS [None]
  - URTICARIA [None]
  - VULVOVAGINAL BURNING SENSATION [None]
